FAERS Safety Report 6189312-1 (Version None)
Quarter: 2009Q2

REPORT INFORMATION
  Report Type: 
  Country: None (occurrence: None)
  Receive Date: 20090512
  Receipt Date: 20090511
  Transmission Date: 20091009
  Serious: Yes (Death)
  Sender: FDA-Public Use
  Company Number: KV200800797

PATIENT
  Age: 65 Year
  Sex: Male
  Weight: 102 kg

DRUGS (15)
  1. ISOSORBIDE MONONITRATE [Suspect]
     Indication: CARDIAC DISORDER
     Dosage: 60 MG, QD, ORAL
     Route: 048
     Dates: end: 20081012
  2. PLAVIX [Concomitant]
  3. VYTORIN [Concomitant]
  4. SPIRONOLACTONE [Concomitant]
  5. CARVEDILOL [Concomitant]
  6. POTASSIUM CHLORIDE [Concomitant]
  7. XANAX [Concomitant]
  8. CITALOPRAM HYDROBROMIDE [Concomitant]
  9. FUROSEMIDE [Concomitant]
  10. LEVOTHYROXINE SODIUM [Concomitant]
  11. LISINOPRIL [Concomitant]
  12. ADVAIR DISKUS 100/50 [Concomitant]
  13. SPIRIVA [Concomitant]
  14. NITROGLYCERIN [Concomitant]
  15. ASPIRIN [Concomitant]

REACTIONS (5)
  - ALCOHOL ABUSE [None]
  - COMPLETED SUICIDE [None]
  - DEPRESSION [None]
  - GUN SHOT WOUND [None]
  - PRODUCT QUALITY ISSUE [None]
